FAERS Safety Report 17863792 (Version 2)
Quarter: 2020Q4

REPORT INFORMATION
  Report Type: Report from Study
  Country: NL (occurrence: NL)
  Receive Date: 20200605
  Receipt Date: 20201125
  Transmission Date: 20210113
  Serious: Yes (Hospitalization)
  Sender: FDA-Public Use
  Company Number: NL-ROCHE-2609935

PATIENT
  Age: 74 Year
  Sex: Female

DRUGS (4)
  1. CARBOPLATIN. [Suspect]
     Active Substance: CARBOPLATIN
     Indication: HER2 POSITIVE BREAST CANCER
     Dosage: MOST RECENT DOSE OF CARBOPLATIN RECEIVED PRIOR TO SAE/AE ONSET: 07/MAY/2020
     Route: 042
     Dates: start: 20200207
  2. TRASTUZUMAB. [Suspect]
     Active Substance: TRASTUZUMAB
     Indication: HER2 POSITIVE BREAST CANCER
     Dosage: MOST RECENT OF TRASTUZUMAB RECEIVED PRIOR TO SAE/AE ONSET:07/MAY/2020
     Route: 041
     Dates: start: 20200207
  3. PERTUZUMAB. [Suspect]
     Active Substance: PERTUZUMAB
     Indication: HER2 POSITIVE BREAST CANCER
     Dosage: MOST RECENT DOSE OF PERTUZUMAB RECEIVED PRIOR TO SAE/AE ONSET: 07/MAY/2020
     Route: 042
     Dates: start: 20200207
  4. PACLITAXEL. [Suspect]
     Active Substance: PACLITAXEL
     Indication: HER2 POSITIVE BREAST CANCER
     Dosage: MOST RECENT DOSE OF PACLITAXEL RECEIVED PRIOR TO SAE/AE ONSET: 13/MAY/2020
     Route: 042
     Dates: start: 20200207

REACTIONS (2)
  - Spinal cord injury [Recovered/Resolved with Sequelae]
  - Epidural haemorrhage [Recovered/Resolved with Sequelae]

NARRATIVE: CASE EVENT DATE: 20200522
